FAERS Safety Report 8307197-1 (Version None)
Quarter: 2012Q2

REPORT INFORMATION
  Report Type: 
  Country: None (occurrence: None)
  Receive Date: 20120424
  Receipt Date: 20120421
  Transmission Date: 20120825
  Serious: Yes (Hospitalization)
  Sender: FDA-Public Use
  Company Number: CN-BAYER-200943964GPV

PATIENT
  Age: 59 Year
  Sex: Male
  Weight: 57 kg

DRUGS (2)
  1. SORAFENIB (RAF KINASE INHIBITOR) [Suspect]
     Indication: NON-SMALL CELL LUNG CANCER
     Route: 048
     Dates: start: 20091110, end: 20091221
  2. MS CONTIN [Concomitant]
     Indication: CHEST PAIN
     Dosage: 100 MG (DAILY DOSE), , ORAL
     Route: 048
     Dates: start: 20091110, end: 20091221

REACTIONS (1)
  - PULMONARY EMBOLISM [None]
